FAERS Safety Report 8336575-X (Version None)
Quarter: 2012Q2

REPORT INFORMATION
  Report Type: 
  Country: None (occurrence: None)
  Receive Date: 20120504
  Receipt Date: 20120502
  Transmission Date: 20120825
  Serious: Yes (Death)
  Sender: FDA-Public Use
  Company Number: US-ASTELLAS-2012US004449

PATIENT
  Sex: Male

DRUGS (2)
  1. AMBISOME [Suspect]
     Indication: ASPERGILLOSIS
     Dosage: 350 MG, UID/QD
     Route: 042
     Dates: start: 20120119, end: 20120207
  2. AMBISOME [Suspect]
     Indication: FUNGAL INFECTION

REACTIONS (1)
  - INFECTION [None]
